FAERS Safety Report 7352328-3 (Version None)
Quarter: 2011Q1

REPORT INFORMATION
  Report Type: 
  Country: None (occurrence: None)
  Receive Date: 20110315
  Receipt Date: 20110307
  Transmission Date: 20110831
  Serious: Yes (Hospitalization)
  Sender: FDA-Public Use
  Company Number: GB-NOVOPROD-321853

PATIENT
  Age: 61 Year
  Sex: Male
  Weight: 124 kg

DRUGS (6)
  1. LEVOTHYROXINE [Concomitant]
     Dosage: 125 UG, QD
  2. PREGABALIN [Concomitant]
     Dosage: 150 MG, BID
  3. ATORVASTATIN [Concomitant]
     Dosage: 40 MG, QD NOCTE
  4. NOVOMIX 30 [Suspect]
     Indication: TYPE 2 DIABETES MELLITUS
     Dosage: 32 IU, TID
     Route: 058
  5. METFORMIN [Concomitant]
     Dosage: 1 G, BID
  6. AMITRIPTYLINE [Concomitant]
     Dosage: 10 MG, QD

REACTIONS (3)
  - GENERALISED OEDEMA [None]
  - BLOOD GLUCOSE INCREASED [None]
  - GENERALISED ERYTHEMA [None]
